FAERS Safety Report 4918128-6 (Version None)
Quarter: 2006Q1

REPORT INFORMATION
  Report Type: 
  Country: None (occurrence: None)
  Receive Date: 20060215
  Receipt Date: 20060208
  Transmission Date: 20060701
  Serious: Yes (Disabling, Other)
  Sender: FDA-Public Use
  Company Number: 2005-01-0766

PATIENT
  Age: 35 Year
  Sex: Female

DRUGS (2)
  1. BETAMETHASONE SODIUM PHOSPHATE [Suspect]
     Dates: start: 20010601, end: 20030701
  2. RINDERON A (FRADIOMYCIN SULFATE/BETHAMETHASONE SODIUM OPHTHALMIC SOLUT [Suspect]
     Dosage: OPHTHALMIC
     Route: 047
     Dates: start: 20000601, end: 20010301

REACTIONS (2)
  - GLAUCOMA [None]
  - TOXIC EPIDERMAL NECROLYSIS [None]
